FAERS Safety Report 5970929-1 (Version None)
Quarter: 2008Q4

REPORT INFORMATION
  Report Type: 
  Country: None (occurrence: None)
  Receive Date: 20081128
  Receipt Date: 20081118
  Transmission Date: 20090506
  Serious: Yes (Hospitalization)
  Sender: FDA-Public Use
  Company Number: PHHY2008JP28911

PATIENT

DRUGS (1)
  1. SLOW-K [Suspect]
     Dosage: UNK
     Route: 048

REACTIONS (1)
  - STEVENS-JOHNSON SYNDROME [None]
